FAERS Safety Report 4311272-6 (Version None)
Quarter: 2004Q1

REPORT INFORMATION
  Report Type: 
  Country: None (occurrence: None)
  Receive Date: 20040302
  Receipt Date: 20040302
  Transmission Date: 20041129
  Serious: Yes (Hospitalization)
  Sender: FDA-Public Use
  Company Number: None

PATIENT
  Age: 62 Year
  Sex: Female
  Weight: 80 kg

DRUGS (7)
  1. FASLODEX [Suspect]
     Indication: LUNG NEOPLASM MALIGNANT
     Dosage: 250 MG IM Q MONTH
     Route: 030
     Dates: start: 20040227
  2. ZD 1839 [Suspect]
     Indication: LUNG NEOPLASM MALIGNANT
     Dosage: 250 MG Q DAY
     Dates: start: 20040227
  3. LISINOPRIL [Concomitant]
  4. GLIPIZIDE ER [Concomitant]
  5. SYNTHROID [Concomitant]
  6. LORAZEPAM [Concomitant]
  7. METOCLOPRAMIDE [Concomitant]

REACTIONS (2)
  - OXYGEN SATURATION DECREASED [None]
  - PLEURAL EFFUSION [None]
